FAERS Safety Report 20234073 (Version 3)
Quarter: 2022Q1

REPORT INFORMATION
  Report Type: Spontaneous
  Country: PT (occurrence: PT)
  Receive Date: 20211227
  Receipt Date: 20220201
  Transmission Date: 20220423
  Serious: Yes (Other)
  Sender: FDA-Public Use
  Company Number: None

PATIENT
  Age: 23 Year
  Sex: Female
  Weight: 79 kg

DRUGS (3)
  1. FABRAZYME [Suspect]
     Active Substance: AGALSIDASE BETA
     Indication: Fabry^s disease
     Dosage: 60 MG A CADA 2 SEMANAS (1 MG/KG A CADA 2 SEMANAS)
     Route: 042
     Dates: start: 20210630, end: 20211103
  2. ASPIRIN [Suspect]
     Active Substance: ASPIRIN
     Indication: Retinal artery thrombosis
     Dosage: 150 MG/DAY
     Route: 048
     Dates: start: 20200322, end: 20211020
  3. IRON [Concomitant]
     Active Substance: IRON
     Dosage: UNK
     Route: 048

REACTIONS (2)
  - Foetal death [Recovered/Resolved with Sequelae]
  - Exposure during pregnancy [Unknown]
